FAERS Safety Report 9511407 (Version 1)
Quarter: 2013Q3

REPORT INFORMATION
  Report Type: Spontaneous
  Country: US (occurrence: None)
  Receive Date: 20130909
  Receipt Date: 20130909
  Transmission Date: 20140515
  Serious: Yes (Other)
  Sender: FDA-Public Use
  Company Number: None

PATIENT
  Age: 44 Year
  Sex: Female
  Weight: 107.96 kg

DRUGS (2)
  1. AVELOX [Suspect]
     Indication: PNEUMONIA
     Dosage: 7 PILLS ONCE DAILY TAKEN BY MOUTH
     Route: 048
     Dates: start: 20130902, end: 20130904
  2. FLOVENT [Concomitant]

REACTIONS (10)
  - Feeling abnormal [None]
  - Dizziness [None]
  - Anxiety [None]
  - Palpitations [None]
  - Feeling abnormal [None]
  - Insomnia [None]
  - Feeling abnormal [None]
  - Feeling abnormal [None]
  - Fear [None]
  - Fatigue [None]
